FAERS Safety Report 5772299-0 (Version None)
Quarter: 2008Q2

REPORT INFORMATION
  Report Type: 
  Country: None (occurrence: None)
  Receive Date: 20080613
  Receipt Date: 20080612
  Transmission Date: 20081010
  Serious: Yes (Life-Threatening, Hospitalization)
  Sender: FDA-Public Use
  Company Number: PHHY2008FR10655

PATIENT
  Sex: Female

DRUGS (18)
  1. VOLTAREN [Suspect]
     Indication: SCIATICA
     Dosage: 75 MG, BID
     Dates: start: 20080420, end: 20080501
  2. PLAVIX [Suspect]
     Indication: THROMBOSIS PROPHYLAXIS
     Dosage: 1 DF, QD
     Dates: end: 20080501
  3. CORTANCYL [Suspect]
     Dosage: 15 MG, QD
  4. METFORMIN HCL [Concomitant]
  5. ACTOS [Concomitant]
  6. HEMIGOXINE NATIVELLE [Concomitant]
  7. SPIRIVA [Concomitant]
  8. OMEPRAZOLE [Concomitant]
  9. LEVOTHYROXINE SODIUM [Concomitant]
  10. EUPHYLLINE [Concomitant]
  11. STABLON [Concomitant]
  12. DOLIPRANE [Concomitant]
  13. OXAZEPAM [Concomitant]
  14. FUROSEMIDE [Concomitant]
  15. PERINDOPRIL ERBUMINE [Concomitant]
  16. ARCALION [Concomitant]
  17. DIPROLENE [Concomitant]
  18. ZALDIAR [Concomitant]

REACTIONS (9)
  - ANAEMIA [None]
  - BLOOD PRESSURE DECREASED [None]
  - DIVERTICULITIS [None]
  - HAEMOGLOBIN DECREASED [None]
  - HEART RATE INCREASED [None]
  - OESOPHAGITIS [None]
  - PALLOR [None]
  - RECTAL HAEMORRHAGE [None]
  - ULCER [None]
